FAERS Safety Report 13042927 (Version 1)
Quarter: 2016Q4

REPORT INFORMATION
  Report Type: Report from Study
  Country: US (occurrence: US)
  Receive Date: 20161219
  Receipt Date: 20161219
  Transmission Date: 20170207
  Serious: Yes (Other)
  Sender: FDA-Public Use
  Company Number: US-JAZZ-2016-US-020303

PATIENT
  Sex: Female

DRUGS (35)
  1. VESICARE [Concomitant]
     Active Substance: SOLIFENACIN SUCCINATE
  2. ADVIL (MEFENAMIC ACID) [Concomitant]
     Active Substance: MEFENAMIC ACID
  3. XYREM [Suspect]
     Active Substance: SODIUM OXYBATE
     Indication: CATAPLEXY
     Dosage: DOSE ADJUSTMENTS
     Route: 048
     Dates: start: 200505, end: 200710
  4. METFORMIN HCL [Concomitant]
     Active Substance: METFORMIN HYDROCHLORIDE
  5. SPIRONOLACTONE. [Concomitant]
     Active Substance: SPIRONOLACTONE
  6. NABUMETONE. [Concomitant]
     Active Substance: NABUMETONE
  7. NEUROTIN                           /00949202/ [Concomitant]
     Active Substance: ACETYLCARNITINE HYDROCHLORIDE
  8. OMNICEF                            /00497602/ [Concomitant]
     Active Substance: CEFOTAXIME SODIUM
  9. TRIAMTERENE. [Concomitant]
     Active Substance: TRIAMTERENE
  10. CIPRO [Concomitant]
     Active Substance: CIPROFLOXACIN HYDROCHLORIDE
  11. MIRAPEX [Concomitant]
     Active Substance: PRAMIPEXOLE DIHYDROCHLORIDE
  12. NASONEX [Concomitant]
     Active Substance: MOMETASONE FUROATE
  13. NYSTATIN. [Concomitant]
     Active Substance: NYSTATIN
  14. ZYRTEC [Concomitant]
     Active Substance: CETIRIZINE HYDROCHLORIDE
  15. LISINOPRIL. [Concomitant]
     Active Substance: LISINOPRIL
  16. XYREM [Suspect]
     Active Substance: SODIUM OXYBATE
     Indication: NARCOLEPSY
     Dosage: 1.5 G, BID
     Route: 048
     Dates: start: 200504, end: 2005
  17. EFFEXOR [Concomitant]
     Active Substance: VENLAFAXINE HYDROCHLORIDE
  18. TYLENOL WITH CODEINE [Concomitant]
     Active Substance: ACETAMINOPHEN\CODEINE PHOSPHATE
  19. NORCO [Concomitant]
     Active Substance: ACETAMINOPHEN\HYDROCODONE BITARTRATE
  20. PROBIOTIC                          /06395501/ [Concomitant]
     Active Substance: BIFIDOBACTERIUM ANIMALIS SUBSP. LACTIS
  21. WELLBUTRIN [Concomitant]
     Active Substance: BUPROPION HYDROCHLORIDE
  22. XYREM [Suspect]
     Active Substance: SODIUM OXYBATE
     Dosage: 4 G, TID
     Route: 048
     Dates: start: 200711
  23. NITROFURANTOIN. [Concomitant]
     Active Substance: NITROFURANTOIN
  24. PANTOPRAZOLE SODIUM. [Concomitant]
     Active Substance: PANTOPRAZOLE SODIUM
  25. BACLOFEN. [Concomitant]
     Active Substance: BACLOFEN
  26. MELOXICAM. [Concomitant]
     Active Substance: MELOXICAM
  27. DOXYCYCLINE HYCLATE. [Concomitant]
     Active Substance: DOXYCYCLINE HYCLATE
  28. CYCLOBENZAPRINE [Concomitant]
     Active Substance: CYCLOBENZAPRINE
  29. GABAPENTIN. [Concomitant]
     Active Substance: GABAPENTIN
  30. LEVOTHYROXINE. [Concomitant]
     Active Substance: LEVOTHYROXINE
  31. PROVIGIL [Concomitant]
     Active Substance: MODAFINIL
  32. CITRANATAL ASSURE [Concomitant]
     Active Substance: .ALPHA.-TOCOPHEROL\ASCORBIC ACID\CALCIUM CITRATE\CHOLECALCIFEROL\COPPER\DOCONEXENT\DOCUSATE SODIUM\FOLIC ACID\ICOSAPENT\IODINE\IRON\NIACINAMIDE\PYRIDOXINE HYDROCHLORIDE\RIBOFLAVIN\THIAMINE\ZINC
  33. LABETALOL HCL [Concomitant]
     Active Substance: LABETALOL HYDROCHLORIDE
  34. TRETINOIN. [Concomitant]
     Active Substance: TRETINOIN
  35. MODAFINIL. [Concomitant]
     Active Substance: MODAFINIL

REACTIONS (1)
  - Cataplexy [Unknown]
